FAERS Safety Report 6806968-8 (Version None)
Quarter: 2010Q2

REPORT INFORMATION
  Report Type: 
  Country: None (occurrence: None)
  Receive Date: 20100629
  Receipt Date: 20080611
  Transmission Date: 20101027
  Serious: No
  Sender: FDA-Public Use
  Company Number: US-PFIZER INC-2008049904

PATIENT
  Sex: Female

DRUGS (3)
  1. MEDROL [Suspect]
     Dates: start: 20080529
  2. ZITHROMAX [Suspect]
  3. AMOXICILLIN [Concomitant]
     Dates: start: 20080529

REACTIONS (2)
  - MEDICATION ERROR [None]
  - TREATMENT NONCOMPLIANCE [None]
